FAERS Safety Report 6984143-4 (Version None)
Quarter: 2010Q3

REPORT INFORMATION
  Report Type: 
  Country: None (occurrence: None)
  Receive Date: 20100915
  Receipt Date: 20090529
  Transmission Date: 20110219
  Serious: No
  Sender: FDA-Public Use
  Company Number: US-WYE-H09565709

PATIENT
  Age: 44 Year
  Sex: Female
  Weight: 72.64 kg

DRUGS (4)
  1. ADVIL PM [Suspect]
     Indication: INSOMNIA
     Dosage: 2 CAPLETS PER DAY AS RECOMMENDED BY HER PHYSICIAN TO USE JUST FOR SLEEPLESS NESS
     Route: 048
     Dates: start: 20090521, end: 20090528
  2. MULTI-VITAMINS [Concomitant]
  3. ACETYLSALICYLIC ACID [Concomitant]
  4. METFORMIN HCL [Concomitant]

REACTIONS (2)
  - CONDITION AGGRAVATED [None]
  - GLUCOSE TOLERANCE IMPAIRED [None]
